FAERS Safety Report 9143380 (Version 1)
Quarter: 2013Q1

REPORT INFORMATION
  Report Type: Spontaneous
  Country: US (occurrence: US)
  Receive Date: 20130306
  Receipt Date: 20130306
  Transmission Date: 20140127
  Serious: No
  Sender: FDA-Public Use
  Company Number: US-ENDO PHARMACEUTICALS INC.-OPER20120112

PATIENT
  Sex: Male

DRUGS (1)
  1. OPANA ER 20MG [Suspect]
     Indication: PAIN
     Route: 048
     Dates: start: 20120207, end: 20120214

REACTIONS (3)
  - Medication residue present [Not Recovered/Not Resolved]
  - Abdominal discomfort [Not Recovered/Not Resolved]
  - Diarrhoea [Not Recovered/Not Resolved]
